FAERS Safety Report 14260727 (Version 1)
Quarter: 2017Q4

REPORT INFORMATION
  Report Type: Spontaneous
  Country: US (occurrence: US)
  Receive Date: 20171207
  Receipt Date: 20171207
  Transmission Date: 20180321
  Serious: No
  Sender: FDA-Public Use
  Company Number: US-BAYER-2017-233010

PATIENT
  Age: 46 Year
  Sex: Female

DRUGS (1)
  1. ESTRADIOL. [Suspect]
     Active Substance: ESTRADIOL
     Dosage: 0.1 MG
     Route: 062
     Dates: start: 201710

REACTIONS (4)
  - Application site rash [Recovered/Resolved]
  - Application site swelling [Recovered/Resolved]
  - Product adhesion issue [None]
  - Application site pruritus [Recovered/Resolved]

NARRATIVE: CASE EVENT DATE: 201710
